FAERS Safety Report 6169999-X (Version None)
Quarter: 2009Q2

REPORT INFORMATION
  Report Type: 
  Country: None (occurrence: None)
  Receive Date: 20090424
  Receipt Date: 20090416
  Transmission Date: 20091009
  Serious: Yes (Other)
  Sender: FDA-Public Use
  Company Number: CHNY2009NL01733

PATIENT
  Age: 29 Year

DRUGS (2)
  1. CLEMASTINE FUMARATE [Suspect]
     Indication: RASH PRURITIC
     Dosage: 1 MG, BID
     Dates: start: 20090404, end: 20090408
  2. METHYLPHENIDATE (NGX) (METHYLPHENIDATE) UNKNOWN [Suspect]
     Indication: ATTENTION DEFICIT/HYPERACTIVITY DISORDER
     Dosage: 15 MG, TID
     Dates: start: 20081010

REACTIONS (2)
  - DELUSION [None]
  - RASH PRURITIC [None]
